FAERS Safety Report 5973020-3 (Version None)
Quarter: 2008Q4

REPORT INFORMATION
  Report Type: 
  Country: None (occurrence: None)
  Receive Date: 20081126
  Receipt Date: 20081126
  Transmission Date: 20090506
  Serious: Yes (Hospitalization, Other)
  Sender: FDA-Public Use
  Company Number: None

PATIENT
  Age: 27 Year
  Sex: Female
  Weight: 74.8435 kg

DRUGS (2)
  1. CYMBALTA [Suspect]
     Indication: MIGRAINE
     Dosage: 60MG 1 DAILY; 30MG 1 DAILY
     Dates: start: 20080401, end: 20080831
  2. CYMBALTA [Suspect]
     Indication: MIGRAINE
     Dosage: 60MG 1 DAILY; 30MG 1 DAILY
     Dates: start: 20080901, end: 20080930

REACTIONS (7)
  - FALL [None]
  - FEELING ABNORMAL [None]
  - LOSS OF LIBIDO [None]
  - MALAISE [None]
  - NO THERAPEUTIC RESPONSE [None]
  - PAIN [None]
  - PARAESTHESIA [None]
